FAERS Safety Report 9555691 (Version 1)
Quarter: 2013Q3

REPORT INFORMATION
  Report Type: Spontaneous
  Country: US (occurrence: None)
  Receive Date: 20130925
  Receipt Date: 20130925
  Transmission Date: 20140515
  Serious: Yes (Hospitalization, Other)
  Sender: FDA-Public Use
  Company Number: None

PATIENT
  Age: 25 Year
  Sex: Male
  Weight: 3.18 kg

DRUGS (1)
  1. ABILIFY [Suspect]
     Indication: ANXIETY

REACTIONS (3)
  - Myoclonus [None]
  - Maternal drugs affecting foetus [None]
  - Ill-defined disorder [None]
